FAERS Safety Report 17829726 (Version 1)
Quarter: 2020Q2

REPORT INFORMATION
  Report Type: Spontaneous
  Country: FR (occurrence: FR)
  Receive Date: 20200527
  Receipt Date: 20200527
  Transmission Date: 20200714
  Serious: Yes (Other)
  Sender: FDA-Public Use
  Company Number: FR-MYLANLABS-2020M1051214

PATIENT
  Age: 83 Year
  Sex: Female
  Weight: 77 kg

DRUGS (15)
  1. AMLODIPINE [Suspect]
     Active Substance: AMLODIPINE BESYLATE
     Indication: HYPERTENSION
     Dosage: 10 MILLIGRAM, QD
     Route: 048
     Dates: start: 20200408
  2. SPIRONOLACTONE. [Concomitant]
     Active Substance: SPIRONOLACTONE
  3. INNOHEP [Suspect]
     Active Substance: TINZAPARIN SODIUM
     Indication: ATRIAL FIBRILLATION
     Dosage: 14000 INTERNATIONAL UNIT, QD
     Route: 058
     Dates: start: 20200407
  4. ULTRA LEVURE [Suspect]
     Active Substance: SACCHAROMYCES CEREVISIAE
     Indication: DIARRHOEA
     Dosage: 2- 0 - 2
     Route: 048
     Dates: start: 20200414, end: 20200416
  5. ALUVIA [Suspect]
     Active Substance: LOPINAVIR\RITONAVIR
     Indication: COVID-19
     Dosage: 4 DOSAGE FORM, QD
     Route: 048
     Dates: start: 20200408, end: 20200422
  6. PREGABALINE [Concomitant]
     Active Substance: PREGABALIN
  7. PANTOPRAZOLE [Concomitant]
     Active Substance: PANTOPRAZOLE
     Dosage: UNK
  8. REBIF [Suspect]
     Active Substance: INTERFERON BETA-1A
     Indication: COVID-19
     Dosage: 132 MICROGRAM, CYCLE
     Route: 058
     Dates: start: 20200408, end: 20200413
  9. DIFFU K [Suspect]
     Active Substance: POTASSIUM CHLORIDE
     Indication: HYPOKALAEMIA
     Dosage: UNK
     Route: 065
     Dates: start: 20200408, end: 20200417
  10. METFORMINE                         /00082701/ [Concomitant]
     Active Substance: METFORMIN HYDROCHLORIDE
  11. REPAGLINIDE. [Concomitant]
     Active Substance: REPAGLINIDE
  12. ABASAGLAR [Concomitant]
     Active Substance: INSULIN GLARGINE
  13. CREON [Concomitant]
     Active Substance: PANCRELIPASE AMYLASE\PANCRELIPASE LIPASE\PANCRELIPASE PROTEASE
     Dosage: UNK
  14. ZAMUDOL LP 100 MG, G?LULE ? LIB?RATION PROLONG?E [Suspect]
     Active Substance: TRAMADOL HYDROCHLORIDE
     Indication: BACK PAIN
     Dosage: 1 DOSAGE FORM, QD
     Route: 065
     Dates: start: 20200410
  15. FUMAFER [Concomitant]
     Active Substance: FERROUS FUMARATE

REACTIONS (1)
  - Hepatocellular injury [Recovered/Resolved]

NARRATIVE: CASE EVENT DATE: 20200415
